FAERS Safety Report 23897393 (Version 3)
Quarter: 2024Q3

REPORT INFORMATION
  Report Type: Spontaneous
  Country: DE (occurrence: DE)
  Receive Date: 20240524
  Receipt Date: 20240708
  Transmission Date: 20241017
  Serious: Yes (Other)
  Sender: BIOVITRUM
  Company Number: DE-BIOVITRUM-2024-DE-007511

PATIENT
  Age: 55 Year
  Sex: Female

DRUGS (1)
  1. DOPTELET [Suspect]
     Active Substance: AVATROMBOPAG MALEATE
     Indication: Immune thrombocytopenia
     Dosage: 4 X 40 MG, ON THE OTHER DAYS 3 X 20 MG
     Dates: end: 20220623

REACTIONS (2)
  - Cerebrovascular accident [Unknown]
  - Platelet count decreased [Unknown]

NARRATIVE: CASE EVENT DATE: 20220616
